FAERS Safety Report 26172383 (Version 1)
Quarter: 2025Q4

REPORT INFORMATION
  Report Type: Spontaneous
  Country: US (occurrence: None)
  Receive Date: 20251218
  Receipt Date: 20251218
  Transmission Date: 20260118
  Serious: Yes (Hospitalization, Other)
  Sender: APOTEX
  Company Number: US-APOTEX-2025AP034107

PATIENT
  Age: 42 Year
  Sex: Female

DRUGS (2)
  1. LITHIUM [Suspect]
     Active Substance: LITHIUM
     Indication: Product used for unknown indication
     Dosage: UNK
     Route: 065
  2. FENTANYL [Suspect]
     Active Substance: FENTANYL
     Indication: Product used for unknown indication
     Dosage: UNK
     Route: 065

REACTIONS (9)
  - Sinus node dysfunction [Unknown]
  - Generalised tonic-clonic seizure [Unknown]
  - Acute kidney injury [Unknown]
  - Arrhythmia [Recovered/Resolved]
  - Cardiac arrest [Unknown]
  - Urinary incontinence [Unknown]
  - Overdose [Unknown]
  - Antipsychotic drug level increased [Recovering/Resolving]
  - Toxicity to various agents [Unknown]
